FAERS Safety Report 8542302-3 (Version None)
Quarter: 2012Q3

REPORT INFORMATION
  Report Type: 
  Country: None (occurrence: None)
  Receive Date: 20120726
  Receipt Date: 20120713
  Transmission Date: 20120928
  Serious: No
  Sender: FDA-Public Use
  Company Number: US-ASTRAZENECA-2012SE38103

PATIENT
  Age: 57 Year
  Sex: Female

DRUGS (1)
  1. NEXIUM [Suspect]
     Indication: OESOPHAGEAL DISORDER
     Route: 048

REACTIONS (7)
  - ERUCTATION [None]
  - DRUG DOSE OMISSION [None]
  - DYSPEPSIA [None]
  - CHEST DISCOMFORT [None]
  - BARRETT'S OESOPHAGUS [None]
  - OFF LABEL USE [None]
  - PAIN [None]
